FAERS Safety Report 4781589-X (Version None)
Quarter: 2005Q3

REPORT INFORMATION
  Report Type: 
  Country: None (occurrence: None)
  Receive Date: 20050928
  Receipt Date: 20050913
  Transmission Date: 20060218
  Serious: Yes (Other)
  Sender: FDA-Public Use
  Company Number: 200516678US

PATIENT
  Sex: 0

DRUGS (1)
  1. LANTUS [Suspect]
     Dosage: DOSE: UNKNOWN
     Route: 051

REACTIONS (1)
  - WEIGHT INCREASED [None]
